FAERS Safety Report 8029329-5 (Version None)
Quarter: 2012Q1

REPORT INFORMATION
  Report Type: 
  Country: None (occurrence: None)
  Receive Date: 20120106
  Receipt Date: 20111223
  Transmission Date: 20120608
  Serious: Yes (Hospitalization, Other)
  Sender: FDA-Public Use
  Company Number: DE-CELGENEUS-062-21880-11032222

PATIENT
  Age: 73 Year
  Sex: Male

DRUGS (6)
  1. ALLOPURINOL [Concomitant]
     Route: 065
  2. REVLIMID [Suspect]
     Dosage: 5 MILLIGRAM
     Route: 048
     Dates: start: 20110216, end: 20110224
  3. REVLIMID [Suspect]
     Indication: MULTIPLE MYELOMA
     Dosage: 15 MILLIGRAM
     Route: 048
     Dates: start: 20101104, end: 20101110
  4. METOPROLOL SUCCINATE [Concomitant]
     Indication: HYPERTENSION
     Route: 065
  5. TORSEMIDE [Concomitant]
     Indication: HYPERTENSION
     Route: 065
  6. RAMIPRIL [Concomitant]
     Indication: HYPERTENSION
     Route: 065

REACTIONS (4)
  - SYNCOPE [None]
  - HICCUPS [None]
  - DIARRHOEA [None]
  - DEHYDRATION [None]
